FAERS Safety Report 16063844 (Version 3)
Quarter: 2019Q2

REPORT INFORMATION
  Report Type: Report from Study
  Country: US (occurrence: US)
  Receive Date: 20190312
  Receipt Date: 20190409
  Transmission Date: 20190711
  Serious: Yes (Hospitalization)
  Sender: FDA-Public Use
  Company Number: US-JNJFOC-20180839446

PATIENT
  Age: 30 Year
  Sex: Female
  Weight: 112.04 kg

DRUGS (4)
  1. USTEKINUMAB [Suspect]
     Active Substance: USTEKINUMAB
     Indication: PSORIASIS
     Route: 058
     Dates: start: 201203, end: 201207
  2. IXEKIZUMAB [Concomitant]
     Active Substance: IXEKIZUMAB
     Route: 065
     Dates: end: 201705
  3. IXEKIZUMAB [Concomitant]
     Active Substance: IXEKIZUMAB
     Route: 065
     Dates: start: 201802
  4. USTEKINUMAB [Suspect]
     Active Substance: USTEKINUMAB
     Indication: PSORIASIS
     Route: 058
     Dates: start: 201308

REACTIONS (1)
  - Papillary thyroid cancer [Not Recovered/Not Resolved]

NARRATIVE: CASE EVENT DATE: 201805
